FAERS Safety Report 10058080 (Version 1)
Quarter: 2014Q2

REPORT INFORMATION
  Report Type: Spontaneous
  Country: US (occurrence: US)
  Receive Date: 20140404
  Receipt Date: 20140404
  Transmission Date: 20141212
  Serious: No
  Sender: FDA-Public Use
  Company Number: US-PFIZER INC-2014092175

PATIENT
  Age: 68 Year
  Sex: Female

DRUGS (1)
  1. LYRICA [Suspect]
     Dosage: 75 MG, ONCE OR TWICE A DAY
     Dates: start: 20090101

REACTIONS (3)
  - Pain [Unknown]
  - Back pain [Unknown]
  - Hallucination [Unknown]
